FAERS Safety Report 8155925-0 (Version None)
Quarter: 2012Q1

REPORT INFORMATION
  Report Type: 
  Country: None (occurrence: None)
  Receive Date: 20120216
  Receipt Date: 20120203
  Transmission Date: 20120608
  Serious: Yes (Death, Hospitalization)
  Sender: FDA-Public Use
  Company Number: TCI2011A04219

PATIENT
  Age: 69 Year
  Sex: Male

DRUGS (6)
  1. ACTOS [Suspect]
     Indication: DIABETES MELLITUS
     Dosage: 15 MG (15 MG, 1 D) PER ORAL 30 MG (30 MG, 1 D) PER ORAL 15 MG (15 MG, 1 D) PER ORAL
     Route: 048
     Dates: start: 20090421, end: 20090826
  2. ACTOS [Suspect]
     Indication: DIABETES MELLITUS
     Dosage: 15 MG (15 MG, 1 D) PER ORAL 30 MG (30 MG, 1 D) PER ORAL 15 MG (15 MG, 1 D) PER ORAL
     Route: 048
     Dates: start: 20060828, end: 20090420
  3. ACTOS [Suspect]
     Indication: DIABETES MELLITUS
     Dosage: 15 MG (15 MG, 1 D) PER ORAL 30 MG (30 MG, 1 D) PER ORAL 15 MG (15 MG, 1 D) PER ORAL
     Route: 048
     Dates: start: 20090827
  4. AMLODIPINE [Concomitant]
  5. JANUVIA [Concomitant]
  6. TRICOR [Concomitant]

REACTIONS (2)
  - URINARY TRACT INFECTION [None]
  - BLADDER CANCER [None]
